FAERS Safety Report 14175392 (Version 1)
Quarter: 2017Q4

REPORT INFORMATION
  Report Type: Spontaneous
  Country: FR (occurrence: FR)
  Receive Date: 20171109
  Receipt Date: 20171109
  Transmission Date: 20180321
  Serious: Yes (Hospitalization)
  Sender: FDA-Public Use
  Company Number: FR-PFIZER INC-2017478659

PATIENT
  Age: 74 Year
  Sex: Male

DRUGS (19)
  1. CALCIPARINE [Suspect]
     Active Substance: HEPARIN CALCIUM
     Indication: THROMBOSIS PROPHYLAXIS
     Dosage: 0.3 ML, 2X/DAY
     Route: 058
     Dates: start: 20171011, end: 20171018
  2. SYMBICORT [Concomitant]
     Active Substance: BUDESONIDE\FORMOTEROL FUMARATE DIHYDRATE
     Dosage: ONE INHALATION IN THE MORNING AND 1 IN THE EVENING
     Route: 055
  3. XATRAL [Concomitant]
     Active Substance: ALFUZOSIN
     Dosage: 10 MG, 1X/DAY
  4. DAPTOMYCINE [Concomitant]
     Active Substance: DAPTOMYCIN
     Dosage: UNK
     Dates: start: 20170926, end: 20171009
  5. CRESTOR [Concomitant]
     Active Substance: ROSUVASTATIN CALCIUM
     Dosage: 5 MG, 1X/DAY
  6. MONOTILDIEM [Concomitant]
     Active Substance: DILTIAZEM
     Dosage: 200 MG, DAILY
  7. MYAMBUTOL [Suspect]
     Active Substance: ETHAMBUTOL HYDROCHLORIDE
     Indication: TUBERCULOSIS
     Dosage: 80 MG, 1X/DAY
     Route: 042
     Dates: start: 20170926, end: 20171019
  8. ROCEPHINE [Concomitant]
     Active Substance: CEFTRIAXONE SODIUM
     Dosage: UNK
     Dates: start: 20170922, end: 20171011
  9. ZYVOXID [Suspect]
     Active Substance: LINEZOLID
     Indication: INFECTION
     Dosage: 600 MG, 2X/DAY
     Route: 042
     Dates: start: 20171010, end: 20171018
  10. RIMIFON [Suspect]
     Active Substance: ISONIAZID
     Indication: TUBERCULOSIS
     Dosage: 400 MG, DAILY
     Route: 042
     Dates: start: 20170926, end: 20171020
  11. COAPROVEL [Concomitant]
     Active Substance: HYDROCHLOROTHIAZIDE\IRBESARTAN
     Dosage: 1 DF, DAILY
  12. VIBRAMYCINE [Concomitant]
     Dosage: UNK
     Dates: start: 20170908, end: 20171006
  13. ALPRESS [Suspect]
     Active Substance: PRAZOSIN
     Indication: HYPERTENSION
     Dosage: 2.5 MG, 1X/DAY
     Route: 048
     Dates: start: 20171006, end: 20171018
  14. RIFADINE /00146901/ [Suspect]
     Active Substance: RIFAMPIN
     Indication: TUBERCULOSIS
     Dosage: 600 MG, DAILY
     Route: 042
     Dates: start: 20170926, end: 20171020
  15. GLUCOPHAGE [Concomitant]
     Active Substance: METFORMIN HYDROCHLORIDE
     Dosage: 500 MG, 2X/DAY
  16. PLAVIX [Concomitant]
     Active Substance: CLOPIDOGREL BISULFATE
     Dosage: 75 MG, 1X/DAY
  17. OMEPRAZOLE. [Concomitant]
     Active Substance: OMEPRAZOLE
     Dosage: 20 MG, 2X/DAY
  18. CEFTAZIDIME PANPHARMA [Suspect]
     Active Substance: CEFTAZIDIME
     Indication: INFECTION
     Dosage: 4 DF, DAILY
     Route: 042
     Dates: start: 20171013, end: 20171022
  19. PAROXETINE. [Concomitant]
     Active Substance: PAROXETINE
     Dosage: 20 MG, 1X/DAY

REACTIONS (1)
  - Thrombocytopenia [Recovered/Resolved]

NARRATIVE: CASE EVENT DATE: 20171016
